FAERS Safety Report 15025440 (Version 3)
Quarter: 2018Q4

REPORT INFORMATION
  Report Type: Spontaneous
  Country: JP (occurrence: JP)
  Receive Date: 20180618
  Receipt Date: 20181203
  Transmission Date: 20190204
  Serious: Yes (Hospitalization, Other)
  Sender: FDA-Public Use
  Company Number: PHJP2018JP012567

PATIENT
  Age: 36 Year
  Sex: Female
  Weight: 47.6 kg

DRUGS (1)
  1. TASIGNA [Suspect]
     Active Substance: NILOTINIB
     Indication: CHRONIC MYELOID LEUKAEMIA
     Dosage: 200 MG, BID
     Route: 048
     Dates: start: 201608, end: 20171201

REACTIONS (6)
  - Polyhydramnios [Not Recovered/Not Resolved]
  - Stillbirth [Unknown]
  - Maternal exposure during pregnancy [Unknown]
  - Foetal hypokinesia [Unknown]
  - Foetal disorder [Unknown]
  - Hydrops foetalis [Unknown]

NARRATIVE: CASE EVENT DATE: 20180530
